FAERS Safety Report 5350400-0 (Version None)
Quarter: 2007Q2

REPORT INFORMATION
  Report Type: 
  Country: None (occurrence: None)
  Receive Date: 20070605
  Receipt Date: 20070605
  Transmission Date: 20071010
  Serious: No
  Sender: FDA-Public Use
  Company Number: None

PATIENT
  Sex: Female

DRUGS (3)
  1. PERCOCET [Suspect]
  2. OXYCODONE HCL [Suspect]
  3. MORPHINE [Suspect]

REACTIONS (5)
  - ABDOMINAL PAIN UPPER [None]
  - HYPERSENSITIVITY [None]
  - NAUSEA [None]
  - RASH PRURITIC [None]
  - VOMITING [None]
